FAERS Safety Report 21770010 (Version 1)
Quarter: 2022Q4

REPORT INFORMATION
  Report Type: Spontaneous
  Country: IL (occurrence: None)
  Receive Date: 20221223
  Receipt Date: 20221223
  Transmission Date: 20230113
  Serious: Yes (Other)
  Sender: FDA-Public Use
  Company Number: IL-ROCHE-3246208

PATIENT
  Age: 77 Year
  Sex: Male

DRUGS (3)
  1. XELODA [Suspect]
     Active Substance: CAPECITABINE
     Indication: Pancreatic neuroendocrine tumour metastatic
     Dosage: DAY 1-14 = 1479 X2 ONCE 28 DAYS.
     Route: 048
  2. XELODA [Suspect]
     Active Substance: CAPECITABINE
     Route: 048
     Dates: start: 202201
  3. TEMOZOLOMIDE [Suspect]
     Active Substance: TEMOZOLOMIDE
     Indication: Pancreatic neuroendocrine tumour metastatic
     Route: 065

REACTIONS (9)
  - Disease progression [Unknown]
  - Asthenia [Unknown]
  - Abdominal pain [Unknown]
  - Blood pressure increased [Unknown]
  - Fatigue [Unknown]
  - Weight decreased [Unknown]
  - Liver function test increased [Unknown]
  - Hepatomegaly [Unknown]
  - Oedema peripheral [Unknown]
